FAERS Safety Report 21153362 (Version 1)
Quarter: 2022Q3

REPORT INFORMATION
  Report Type: Spontaneous
  Country: US (occurrence: US)
  Receive Date: 20220731
  Receipt Date: 20220731
  Transmission Date: 20221027
  Serious: Yes (Other)
  Sender: FDA-Public Use
  Company Number: US-SA-SAC20220727000248

PATIENT
  Sex: Female

DRUGS (29)
  1. AUBAGIO [Suspect]
     Active Substance: TERIFLUNOMIDE
     Indication: Multiple sclerosis
     Dosage: 1 DF, QD
     Route: 048
     Dates: start: 2017
  2. RITUXIMAB [Concomitant]
     Active Substance: RITUXIMAB
  3. BENDEKA [Concomitant]
     Active Substance: BENDAMUSTINE HYDROCHLORIDE
  4. DALFAMPRIDINE [Concomitant]
     Active Substance: DALFAMPRIDINE
  5. BENADRYL [Concomitant]
     Active Substance: DIPHENHYDRAMINE HYDROCHLORIDE
  6. VITAMIN D3 [Concomitant]
     Active Substance: CHOLECALCIFEROL
  7. IBUPROFEN [Concomitant]
     Active Substance: IBUPROFEN
  8. ALBUTEROL [Concomitant]
     Active Substance: ALBUTEROL
  9. MIRTAZAPINE [Concomitant]
     Active Substance: MIRTAZAPINE
  10. ASPIRIN [Concomitant]
     Active Substance: ASPIRIN
  11. SUDAFED [Concomitant]
     Active Substance: PSEUDOEPHEDRINE HYDROCHLORIDE
  12. TYLENOL [Concomitant]
     Active Substance: ACETAMINOPHEN
  13. EXCEDRIN EXTRA STRENGTH [Concomitant]
     Active Substance: ACETAMINOPHEN\ASPIRIN\CAFFEINE
  14. VITAMINS NOS [Concomitant]
     Active Substance: VITAMINS
  15. ZYRTEC [Concomitant]
     Active Substance: CETIRIZINE HYDROCHLORIDE
  16. BRONKAID [EPHEDRINE SULFATE;GUAIFENESIN;THEOPHYLLINE] [Concomitant]
  17. FLUTICASONE PROPIONATE\SALMETEROL XINAFOATE [Concomitant]
     Active Substance: FLUTICASONE PROPIONATE\SALMETEROL XINAFOATE
  18. METFORMIN HYDROCHLORIDE [Concomitant]
     Active Substance: METFORMIN HYDROCHLORIDE
  19. SUCRALFATE [Concomitant]
     Active Substance: SUCRALFATE
  20. FAMOTIDINE [Concomitant]
     Active Substance: FAMOTIDINE
  21. TOPIRAMATE [Concomitant]
     Active Substance: TOPIRAMATE
  22. GUAIFENESIN [Concomitant]
     Active Substance: GUAIFENESIN
  23. ATORVASTATIN CALCIUM [Concomitant]
     Active Substance: ATORVASTATIN CALCIUM
  24. TRAZODONE HCL [Concomitant]
     Active Substance: TRAZODONE HYDROCHLORIDE
  25. SERTRALINE HYDROCHLORIDE [Concomitant]
     Active Substance: SERTRALINE HYDROCHLORIDE
  26. GABAPENTIN [Concomitant]
     Active Substance: GABAPENTIN
  27. CYCLOBENZAPRINE HYDROCHLORIDE [Concomitant]
     Active Substance: CYCLOBENZAPRINE HYDROCHLORIDE
  28. BACLOFEN [Concomitant]
     Active Substance: BACLOFEN
  29. MAGNESIUM [Concomitant]
     Active Substance: MAGNESIUM

REACTIONS (2)
  - Neoplasm malignant [Unknown]
  - Intestinal obstruction [Not Recovered/Not Resolved]
